FAERS Safety Report 13558072 (Version 1)
Quarter: 2017Q2

REPORT INFORMATION
  Report Type: Spontaneous
  Country: US (occurrence: US)
  Receive Date: 20170518
  Receipt Date: 20170518
  Transmission Date: 20170830
  Serious: No
  Sender: FDA-Public Use
  Company Number: US-GLAXOSMITHKLINE-US2017070992

PATIENT
  Sex: Female

DRUGS (1)
  1. TRANSDERM SCOP [Suspect]
     Active Substance: SCOPOLAMINE
     Indication: PROPHYLAXIS AGAINST MOTION SICKNESS
     Dosage: UNK

REACTIONS (6)
  - Nausea [Recovered/Resolved]
  - Malaise [Recovered/Resolved]
  - Mydriasis [Recovered/Resolved]
  - Drug ineffective [Unknown]
  - Tongue discolouration [Recovered/Resolved]
  - Anxiety [Recovered/Resolved]
